FAERS Safety Report 9134592 (Version 1)
Quarter: 2013Q1

REPORT INFORMATION
  Report Type: Spontaneous
  Country: US (occurrence: US)
  Receive Date: 20130304
  Receipt Date: 20130304
  Transmission Date: 20140127
  Serious: Yes (Other)
  Sender: FDA-Public Use
  Company Number: PHEH2013US004789

PATIENT
  Sex: Female

DRUGS (16)
  1. EXFORGE [Suspect]
     Dosage: 1 DF (160 MG VALS/ 10 MG AMLO), QD
     Route: 048
     Dates: start: 2009
  2. TOPROL XL [Concomitant]
     Dosage: 100 MG, UNK
  3. PANTOPRAZOLE [Concomitant]
  4. SUCRALFATE [Concomitant]
  5. WELLBUTRIN [Concomitant]
  6. LEVOTHYROXINE [Concomitant]
  7. ATORVASTATIN [Concomitant]
  8. ASPIRIN [Concomitant]
     Dosage: 325 MG, UNK
  9. PLAVIX [Concomitant]
     Dosage: 75 MG, UNK
  10. MYLANTA [Concomitant]
  11. ACYCLOVIR [Concomitant]
     Dosage: 800 MG, UNK
  12. CIPROFLOXACIN [Concomitant]
     Dosage: 250 MG, UNK
  13. XANAX [Concomitant]
     Dosage: 0.5 MG, UNK
  14. TYLENOL [Concomitant]
     Dosage: UNK UKN, UNK
  15. FISH OIL [Concomitant]
     Dosage: UNK UKN, UNK
  16. ISOSORB MONO [Concomitant]
     Dosage: 300 MG, UNK

REACTIONS (10)
  - Leukaemia [Unknown]
  - Diverticulitis [Unknown]
  - Intestinal prolapse [Unknown]
  - Arthritis [Unknown]
  - Urinary tract infection [Unknown]
  - Nerve compression [Unknown]
  - Herpes zoster [Unknown]
  - Gastritis [Unknown]
  - Gastrooesophageal reflux disease [Unknown]
  - Blood pressure fluctuation [Unknown]
